FAERS Safety Report 4471588-X (Version None)
Quarter: 2004Q4

REPORT INFORMATION
  Report Type: 
  Country: None (occurrence: None)
  Receive Date: 20041012
  Receipt Date: 20040920
  Transmission Date: 20050328
  Serious: Yes (Hospitalization)
  Sender: FDA-Public Use
  Company Number: FR-GLAXOSMITHKLINE-B0345681A

PATIENT
  Age: 53 Year
  Sex: Female
  Weight: 61 kg

DRUGS (4)
  1. ZOPHREN [Suspect]
     Indication: PROPHYLAXIS OF NAUSEA AND VOMITING
     Dosage: 8MG PER DAY
     Route: 042
     Dates: start: 20040825, end: 20040825
  2. LEDERFOLINE [Suspect]
     Indication: COLON CANCER
     Dosage: 325MG PER DAY
     Route: 042
     Dates: start: 20040825, end: 20040825
  3. ELOXATIN [Suspect]
     Indication: COLON CANCER
     Dosage: 140MG PER DAY
     Route: 042
     Dates: start: 20040825, end: 20040825
  4. FLUOROURACIL [Suspect]
     Indication: COLON CANCER
     Dosage: 650MG PER DAY
     Route: 042
     Dates: start: 20040825, end: 20040825

REACTIONS (3)
  - CHILLS [None]
  - PYREXIA [None]
  - RASH MACULAR [None]
